FAERS Safety Report 11360709 (Version 2)
Quarter: 2015Q3

REPORT INFORMATION
  Report Type: Report from Study
  Country: US (occurrence: US)
  Receive Date: 20150810
  Receipt Date: 20150825
  Transmission Date: 20151125
  Serious: Yes (Hospitalization)
  Sender: FDA-Public Use
  Company Number: US-ABBVIE-15K-163-1439680-00

PATIENT
  Age: 42 Year
  Sex: Female
  Weight: 56.75 kg

DRUGS (1)
  1. HUMIRA [Suspect]
     Active Substance: ADALIMUMAB
     Indication: COLITIS ULCERATIVE
     Route: 058
     Dates: start: 20150430, end: 201507

REACTIONS (8)
  - Malaise [Unknown]
  - Gastrointestinal infection [Recovered/Resolved]
  - Pyrexia [Recovered/Resolved]
  - Gallbladder enlargement [Not Recovered/Not Resolved]
  - Appendix disorder [Not Recovered/Not Resolved]
  - Rectal haemorrhage [Not Recovered/Not Resolved]
  - Gastrointestinal inflammation [Not Recovered/Not Resolved]
  - Gastrointestinal pain [Not Recovered/Not Resolved]

NARRATIVE: CASE EVENT DATE: 2015
